FAERS Safety Report 8579562-9 (Version None)
Quarter: 2012Q3

REPORT INFORMATION
  Report Type: 
  Country: None (occurrence: None)
  Receive Date: 20120808
  Receipt Date: 20120803
  Transmission Date: 20120928
  Serious: Yes (Other)
  Sender: FDA-Public Use
  Company Number: PHHY2011JP113152

PATIENT
  Sex: Male

DRUGS (2)
  1. EXELON [Suspect]
     Indication: DEMENTIA
     Route: 062
     Dates: start: 20111101, end: 20111228
  2. ALLOPURINOL [Suspect]
     Dosage: 100 MG, DAILY
     Route: 048

REACTIONS (4)
  - RENAL FAILURE CHRONIC [None]
  - RASH [None]
  - EOSINOPHIL COUNT INCREASED [None]
  - PRURITUS [None]
